FAERS Safety Report 5345835-6 (Version None)
Quarter: 2007Q2

REPORT INFORMATION
  Report Type: 
  Country: None (occurrence: None)
  Receive Date: 20070426
  Receipt Date: 20061122
  Transmission Date: 20071010
  Serious: Yes (Other)
  Sender: FDA-Public Use
  Company Number: US-JNJFOC-20060904728

PATIENT
  Age: 73 Year
  Sex: Male
  Weight: 79.3795 kg

DRUGS (7)
  1. RAZADYNE ER [Suspect]
     Indication: DEMENTIA
     Dosage: SEE IMAGE
     Route: 048
     Dates: start: 20060303, end: 20060317
  2. RAZADYNE ER [Suspect]
     Indication: DEMENTIA
     Dosage: SEE IMAGE
     Route: 048
     Dates: start: 20061008, end: 20061013
  3. KCL (POTASSIUM CHLORIDE) TABLET [Concomitant]
  4. SOTALOL (SOTALOL) TABLET [Concomitant]
  5. PREDNISONE [Concomitant]
  6. SINEMET CR (SINEMET) TABLET [Concomitant]
  7. FLORINEF (FLUDROCORTISIONE ACETATE) [Concomitant]

REACTIONS (4)
  - HALLUCINATION, VISUAL [None]
  - MALAISE [None]
  - NAUSEA [None]
  - VERTIGO [None]
